FAERS Safety Report 24735436 (Version 1)
Quarter: 2024Q4

REPORT INFORMATION
  Report Type: Spontaneous
  Country: FR (occurrence: FR)
  Receive Date: 20241216
  Receipt Date: 20241216
  Transmission Date: 20250114
  Serious: Yes (Death)
  Sender: AMGEN
  Company Number: FR-AMGEN-FRASP2024244600

PATIENT

DRUGS (1)
  1. ECULIZUMAB [Suspect]
     Active Substance: ECULIZUMAB
     Indication: Sickle cell disease
     Dosage: UNK
     Route: 065

REACTIONS (4)
  - Haemolysis [Fatal]
  - Cor pulmonale acute [Fatal]
  - Multiple organ dysfunction syndrome [Fatal]
  - Off label use [Unknown]
